FAERS Safety Report 8516814-2 (Version None)
Quarter: 2012Q3

REPORT INFORMATION
  Report Type: 
  Country: None (occurrence: None)
  Receive Date: 20120718
  Receipt Date: 20120706
  Transmission Date: 20120928
  Serious: Yes (Hospitalization)
  Sender: FDA-Public Use
  Company Number: DE-AMGEN-DEUCT2012042903

PATIENT
  Age: 72 Year
  Sex: Female
  Weight: 66 kg

DRUGS (7)
  1. ERGOCALCIFEROL [Concomitant]
     Indication: OSTEOPOROSIS
     Dosage: 1000 IU, 1X/DAY
     Route: 048
     Dates: start: 20110701
  2. DECORTIN-H                         /00016201/ [Concomitant]
     Indication: RHEUMATOID ARTHRITIS
     Dosage: 20 MG, 1X/DAY
     Route: 048
     Dates: start: 20111001
  3. DECORTIN-H                         /00016201/ [Concomitant]
     Dosage: 7.5 MG, 1X/DAY
     Route: 048
     Dates: start: 20120401
  4. ETANERCEPT [Suspect]
     Indication: RHEUMATOID ARTHRITIS
     Dosage: 50 MG, QWK
     Dates: start: 20111028, end: 20120229
  5. DECORTIN-H                         /00016201/ [Concomitant]
     Dosage: 2.5 MG, 1X/DAY
     Route: 048
     Dates: start: 20110101, end: 20111205
  6. DECORTIN-H                         /00016201/ [Concomitant]
     Dosage: 5 MG, 1X/DAY
     Route: 048
     Dates: start: 20110101, end: 20110101
  7. ALENDRONATE SODIUM [Concomitant]
     Indication: OSTEOPOROSIS
     Dosage: 70 MG, WEEKLY
     Route: 048
     Dates: start: 20111001

REACTIONS (2)
  - OTITIS MEDIA [None]
  - CHOLESTEATOMA [None]
